FAERS Safety Report 14935299 (Version 1)
Quarter: 2018Q2

REPORT INFORMATION
  Report Type: Spontaneous
  Country: IT (occurrence: IT)
  Receive Date: 20180524
  Receipt Date: 20180524
  Transmission Date: 20180711
  Serious: Yes (Hospitalization)
  Sender: FDA-Public Use
  Company Number: PHHY2018IT007359

PATIENT
  Age: 34 Year
  Sex: Male

DRUGS (2)
  1. SERPAX [Suspect]
     Active Substance: OXAZEPAM
     Indication: SOMATIC DYSFUNCTION
     Dosage: 17 DF, ONCE/SINGLE (TOTAL)
     Route: 048
     Dates: start: 20180221, end: 20180221
  2. HYDROCHLOROTHIAZIDE,VALSARTAN [Suspect]
     Active Substance: HYDROCHLOROTHIAZIDE\VALSARTAN
     Indication: PRODUCT USED FOR UNKNOWN INDICATION
     Dosage: 15 DF, ONCE/SINGLE (TOTAL)
     Route: 048
     Dates: start: 20180221, end: 20180221

REACTIONS (4)
  - Drug abuse [Unknown]
  - Mood altered [Unknown]
  - Inappropriate affect [Unknown]
  - Slow speech [Unknown]

NARRATIVE: CASE EVENT DATE: 20180221
